FAERS Safety Report 21358932 (Version 1)
Quarter: 2022Q3

REPORT INFORMATION
  Report Type: Spontaneous
  Country: US (occurrence: None)
  Receive Date: 20220920
  Receipt Date: 20220920
  Transmission Date: 20221027
  Serious: No
  Sender: FDA-Public Use
  Company Number: None

PATIENT
  Age: 85 Year
  Sex: Female

DRUGS (1)
  1. ODOMZO [Suspect]
     Active Substance: SONIDEGIB
     Indication: Basal cell carcinoma
     Dosage: OTHER QUANTITY : TAKE 1 CAP;?OTHER FREQUENCY : D ON EMPTY BELLY;?OTHER ROUTE : ORAL;1 OR 2 HOURS BEF
     Route: 050
     Dates: start: 202107

REACTIONS (1)
  - Death [None]
